FAERS Safety Report 4603255-3 (Version None)
Quarter: 2005Q1

REPORT INFORMATION
  Report Type: 
  Country: None (occurrence: None)
  Receive Date: 20050308
  Receipt Date: 20050301
  Transmission Date: 20050727
  Serious: Yes (Other)
  Sender: FDA-Public Use
  Company Number: 200413413GDS

PATIENT
  Age: 63 Year
  Sex: Male

DRUGS (2)
  1. GLUCOBAY [Suspect]
     Indication: DIABETES MELLITUS NON-INSULIN-DEPENDENT
     Dosage: 300 MG, TOTAL DAILY,
     Dates: start: 20030619, end: 20040527
  2. BASEN [Concomitant]

REACTIONS (3)
  - ABDOMINAL DISCOMFORT [None]
  - PAIN [None]
  - PNEUMATOSIS CYSTOIDES INTESTINALIS [None]
